FAERS Safety Report 5956834-5 (Version None)
Quarter: 2008Q4

REPORT INFORMATION
  Report Type: 
  Country: None (occurrence: None)
  Receive Date: 20081118
  Receipt Date: 20081107
  Transmission Date: 20090506
  Serious: Yes (Other)
  Sender: FDA-Public Use
  Company Number: GB-WYE-G02503408

PATIENT
  Sex: Male

DRUGS (2)
  1. EFFEXOR [Suspect]
     Dosage: UNKNOWN
  2. ZISPIN [Interacting]
     Dosage: UNKNOWN

REACTIONS (6)
  - DIZZINESS [None]
  - DRUG INTERACTION [None]
  - DRUG WITHDRAWAL SYNDROME [None]
  - HEADACHE [None]
  - MALAISE [None]
  - PARAESTHESIA [None]
